FAERS Safety Report 8046160 (Version 5)
Quarter: 2012Q4

REPORT INFORMATION
  Report Type: Report from Study
  Country: US (occurrence: US)
  Receive Date: 20110720
  Receipt Date: 20120830
  Transmission Date: 20130627
  Serious: Yes (Hospitalization)
  Sender: FDA-Public Use
  Company Number: US-ABBOTT-11P-163-0838693-00

PATIENT
  Age: 55 Year
  Sex: Female
  Weight: 100.33 kg

DRUGS (3)
  1. HUMIRA [Suspect]
     Indication: PSORIASIS
     Route: 058
     Dates: start: 20100430, end: 20110330
  2. HUMIRA [Suspect]
     Route: 058
     Dates: start: 20110421, end: 20110621
  3. CYCLOSPORINE [Concomitant]
     Indication: PSORIASIS
     Dates: start: 20110421

REACTIONS (1)
  - Hepatic cirrhosis [Recovered/Resolved]
